FAERS Safety Report 16624247 (Version 1)
Quarter: 2019Q3

REPORT INFORMATION
  Report Type: Spontaneous
  Country: CA (occurrence: CA)
  Receive Date: 20190724
  Receipt Date: 20190724
  Transmission Date: 20191004
  Serious: Yes (Hospitalization, Other)
  Sender: FDA-Public Use
  Company Number: CA-AUROBINDO-AUR-APL-2019-004127

PATIENT
  Age: 37 Year
  Sex: Male

DRUGS (6)
  1. SILDENAFIL CITRATE. [Suspect]
     Active Substance: SILDENAFIL CITRATE
     Indication: SUBSTANCE USE
     Dosage: UNK, TOTAL
     Route: 048
  2. SILDENAFIL CITRATE. [Suspect]
     Active Substance: SILDENAFIL CITRATE
     Indication: PRODUCT USED FOR UNKNOWN INDICATION
  3. TADALAFIL TABLET [Suspect]
     Active Substance: TADALAFIL
     Indication: SUBSTANCE USE
     Dosage: UNK, TOTAL
     Route: 048
  4. TADALAFIL TABLET [Suspect]
     Active Substance: TADALAFIL
     Indication: PRODUCT USED FOR UNKNOWN INDICATION
  5. SILDENAFIL CITRATE. [Suspect]
     Active Substance: SILDENAFIL CITRATE
     Indication: SUBSTANCE USE
     Dosage: UNK
     Route: 065
  6. SILDENAFIL CITRATE. [Suspect]
     Active Substance: SILDENAFIL CITRATE
     Indication: PRODUCT USED FOR UNKNOWN INDICATION

REACTIONS (5)
  - Fixed eruption [Recovered/Resolved]
  - Drug abuse [Unknown]
  - Rash erythematous [Recovered/Resolved]
  - Eosinophil count increased [Recovered/Resolved]
  - Intentional product misuse [Recovered/Resolved]
